FAERS Safety Report 5603980-1 (Version None)
Quarter: 2008Q1

REPORT INFORMATION
  Report Type: 
  Country: None (occurrence: None)
  Receive Date: 20080124
  Receipt Date: 20080124
  Transmission Date: 20080703
  Serious: Yes (Other)
  Sender: FDA-Public Use
  Company Number: None

PATIENT
  Age: 66 Year
  Sex: Male
  Weight: 84.8226 kg

DRUGS (1)
  1. HYDREA [Suspect]
     Dosage: 500MG TID PO
     Route: 048

REACTIONS (5)
  - ANXIETY [None]
  - FATIGUE [None]
  - FLUSHING [None]
  - MYALGIA [None]
  - THERAPEUTIC RESPONSE UNEXPECTED WITH DRUG SUBSTITUTION [None]
